FAERS Safety Report 6328834-7 (Version None)
Quarter: 2009Q3

REPORT INFORMATION
  Report Type: 
  Country: None (occurrence: None)
  Receive Date: 20090825
  Receipt Date: 20090825
  Transmission Date: 20100115
  Serious: Yes (Life-Threatening, Hospitalization, Other)
  Sender: FDA-Public Use
  Company Number: None

PATIENT
  Age: 44 Year
  Sex: Female
  Weight: 65.7716 kg

DRUGS (2)
  1. TYLENOL SINUS ? TYLENOL [Suspect]
     Indication: SINUS HEADACHE
     Dosage: TWO TABLETS ONCE A DAY PO
     Route: 048
     Dates: start: 20090514, end: 20090602
  2. TYLENOL SINUS ? TYLENOL [Suspect]
     Indication: SINUS HEADACHE
     Dosage: TWO TABLETS ONCE A DAY PO
     Route: 048
     Dates: start: 20090601, end: 20090603

REACTIONS (1)
  - DRUG HYPERSENSITIVITY [None]
